FAERS Safety Report 6528056-0 (Version None)
Quarter: 2009Q4

REPORT INFORMATION
  Report Type: 
  Country: None (occurrence: None)
  Receive Date: 20091230
  Receipt Date: 20091222
  Transmission Date: 20100525
  Serious: Yes (Other)
  Sender: FDA-Public Use
  Company Number: 2009JP005939

PATIENT
  Age: 5 Year
  Sex: Female
  Weight: 18 kg

DRUGS (11)
  1. PROGRAF [Suspect]
     Indication: BONE MARROW TRANSPLANT
     Dosage: 0.21 MG/KG, CONTINUOUS, IV NOS
     Route: 042
     Dates: start: 20090729, end: 20091013
  2. GANCICLOVIR [Suspect]
     Indication: CYTOMEGALOVIRUS INFECTION
     Dosage: 90 MG, BID, IV NOS; 90 MG, UID/QD, IV NOS
     Route: 042
     Dates: start: 20090909, end: 20090926
  3. GANCICLOVIR [Suspect]
     Indication: CYTOMEGALOVIRUS INFECTION
     Dosage: 90 MG, BID, IV NOS; 90 MG, UID/QD, IV NOS
     Route: 042
     Dates: start: 20090927, end: 20091009
  4. NEO-MINOPHAGEN C (GLYCYRRHIZIC ACID, AMMONIUM SALT) INJECTION [Concomitant]
  5. MEROPEN (MEROPENEM) INJECTION [Concomitant]
  6. FUNGUARD (MICAFUNGIN) INJECTION [Concomitant]
  7. POLYMYXIN B (POLYMYXIN B) GRANULE [Concomitant]
  8. FLORID (MICONAZOLE) GEL [Concomitant]
  9. PRODIF (FOSFLUCONAZOLE) INJECTION [Concomitant]
  10. URSO (URSODEOXYCHOLIC ACID, RIBOFLAVIN) TABLET [Concomitant]
  11. FLUCONAZOLE (FLUCONAZOLE) FORMULATION UNKNOWN [Concomitant]

REACTIONS (4)
  - ASPERGILLOSIS [None]
  - CYTOMEGALOVIRUS INFECTION [None]
  - RHABDOMYOLYSIS [None]
  - SEPSIS [None]
